FAERS Safety Report 21544601 (Version 2)
Quarter: 2022Q4

REPORT INFORMATION
  Report Type: Report from Study
  Country: US (occurrence: US)
  Receive Date: 20221102
  Receipt Date: 20221123
  Transmission Date: 20230113
  Serious: Yes (Hospitalization, Other)
  Sender: FDA-Public Use
  Company Number: US-BRISTOL-MYERS SQUIBB COMPANY-2022-127999

PATIENT
  Age: 57 Year
  Sex: Female
  Weight: 104.33 kg

DRUGS (7)
  1. REVLIMID [Suspect]
     Active Substance: LENALIDOMIDE
     Indication: Plasma cell myeloma
     Route: 048
     Dates: start: 20181001
  2. REVLIMID [Suspect]
     Active Substance: LENALIDOMIDE
     Indication: Illness
     Route: 048
  3. OXYCODONE HYDROCHLORIDE [Concomitant]
     Active Substance: OXYCODONE HYDROCHLORIDE
  4. POTASSIUM GLUCONATE [Concomitant]
     Active Substance: POTASSIUM GLUCONATE
     Dosage: 595(99),
  5. VITAMIN C [Concomitant]
     Active Substance: ASCORBIC ACID
  6. VITAMIN D3 [Concomitant]
     Active Substance: CHOLECALCIFEROL
  7. XGEVA [Concomitant]
     Active Substance: DENOSUMAB

REACTIONS (11)
  - Incision site pruritus [Recovering/Resolving]
  - Pain [Unknown]
  - Muscle spasms [Unknown]
  - Diarrhoea [Unknown]
  - Pertussis [Unknown]
  - Immunodeficiency [Unknown]
  - Clostridium difficile infection [Unknown]
  - Gallbladder disorder [Unknown]
  - Thrombosis [Unknown]
  - Off label use [Unknown]
  - Insomnia [Unknown]

NARRATIVE: CASE EVENT DATE: 20181001
